FAERS Safety Report 23806648 (Version 1)
Quarter: 2024Q2

REPORT INFORMATION
  Report Type: Spontaneous
  Country: US (occurrence: US)
  Receive Date: 20240502
  Receipt Date: 20240502
  Transmission Date: 20240716
  Serious: Yes (Other)
  Sender: FDA-Public Use
  Company Number: US-KHC-000003

PATIENT

DRUGS (1)
  1. DEXTRAN 70, HYPROMELLOSE 2910 [Suspect]
     Active Substance: DEXTRAN 70\HYPROMELLOSE 2910 (4000 MPA.S)
     Indication: Product used for unknown indication
     Route: 065

REACTIONS (4)
  - Blindness [Unknown]
  - Eye pain [Unknown]
  - Ocular hyperaemia [Unknown]
  - Product quality issue [Unknown]
